FAERS Safety Report 8149540-2 (Version None)
Quarter: 2012Q1

REPORT INFORMATION
  Report Type: 
  Country: None (occurrence: None)
  Receive Date: 20120218
  Receipt Date: 20111028
  Transmission Date: 20120608
  Serious: No
  Sender: FDA-Public Use
  Company Number: US-ALLERGAN-1114277US

PATIENT
  Age: 35 Year
  Sex: Female

DRUGS (1)
  1. BOTOX COSMETIC [Suspect]
     Indication: SKIN WRINKLING
     Dosage: 46 UNITS, SINGLE
     Route: 030
     Dates: start: 20111014, end: 20111014

REACTIONS (7)
  - DIZZINESS [None]
  - HYPOAESTHESIA EYE [None]
  - VISION BLURRED [None]
  - HEADACHE [None]
  - FACIAL PARESIS [None]
  - DIPLOPIA [None]
  - NAUSEA [None]
